FAERS Safety Report 10583804 (Version 2)
Quarter: 2014Q4

REPORT INFORMATION
  Report Type: Spontaneous
  Country: US (occurrence: US)
  Receive Date: 20141114
  Receipt Date: 20141120
  Transmission Date: 20150529
  Serious: Yes (Death, Hospitalization)
  Sender: FDA-Public Use
  Company Number: US-UNITED THERAPEUTICS-UNT-2014-010753

PATIENT
  Age: 38 Year
  Sex: Female
  Weight: 53.61 kg

DRUGS (1)
  1. REMODULIN [Suspect]
     Active Substance: TREPROSTINIL
     Indication: PULMONARY HYPERTENSION
     Dosage: 0.072 ?G/KG, CONTINUING
     Route: 058
     Dates: start: 20140923

REACTIONS (6)
  - Fibromyalgia [Unknown]
  - Pain [Unknown]
  - Sepsis [Fatal]
  - Urine analysis abnormal [Unknown]
  - Systemic lupus erythematosus [Unknown]
  - Hypoxia [Unknown]

NARRATIVE: CASE EVENT DATE: 20141021
